FAERS Safety Report 18294859 (Version 2)
Quarter: 2021Q3

REPORT INFORMATION
  Report Type: Spontaneous
  Country: US (occurrence: US)
  Receive Date: 20200922
  Receipt Date: 20210913
  Transmission Date: 20211014
  Serious: No
  Sender: FDA-Public Use
  Company Number: US-GLOBAL BLOOD THERAPEUTICS INC-US-GBT-20-01704

PATIENT
  Age: 24 Year
  Sex: Female

DRUGS (4)
  1. MS CONTIN [Concomitant]
     Active Substance: MORPHINE SULFATE
     Indication: PRODUCT USED FOR UNKNOWN INDICATION
     Dosage: NOT PROVIDED
  2. OXBRYTA [Suspect]
     Active Substance: VOXELOTOR
     Route: 048
     Dates: start: 20200617
  3. OXBRYTA [Suspect]
     Active Substance: VOXELOTOR
     Indication: SICKLE CELL ANAEMIA WITH CRISIS
     Route: 048
     Dates: start: 20200601, end: 20200612
  4. HYDROMORPHONE [Concomitant]
     Active Substance: HYDROMORPHONE
     Indication: PRODUCT USED FOR UNKNOWN INDICATION
     Dosage: NOT PROVIDED

REACTIONS (8)
  - Rash [Recovered/Resolved]
  - Nausea [Recovering/Resolving]
  - Sickle cell anaemia with crisis [Unknown]
  - Pruritus [Recovered/Resolved]
  - Product dose omission issue [Unknown]
  - Sickle cell anaemia with crisis [Unknown]
  - Vomiting [Recovering/Resolving]
  - Off label use [Unknown]

NARRATIVE: CASE EVENT DATE: 202006
